FAERS Safety Report 25468265 (Version 1)
Quarter: 2025Q2

REPORT INFORMATION
  Report Type: Spontaneous
  Country: US (occurrence: None)
  Receive Date: 20250620
  Receipt Date: 20250620
  Transmission Date: 20250717
  Serious: Yes (unspecified)
  Sender: FDA-CTU
  Company Number: None

PATIENT
  Age: 14 Year
  Sex: Female
  Weight: 52 kg

DRUGS (1)
  1. OMNIPAQUE [Suspect]
     Active Substance: IOHEXOL
     Route: 042
     Dates: start: 20250515, end: 20250515

REACTIONS (3)
  - Throat irritation [None]
  - Urticaria [None]
  - Contrast media reaction [None]

NARRATIVE: CASE EVENT DATE: 20250515
